FAERS Safety Report 19524979 (Version 1)
Quarter: 2021Q3

REPORT INFORMATION
  Report Type: Spontaneous
  Country: US (occurrence: US)
  Receive Date: 20210712
  Receipt Date: 20210712
  Transmission Date: 20211014
  Serious: Yes (Hospitalization)
  Sender: FDA-Public Use
  Company Number: None

PATIENT
  Sex: Male

DRUGS (12)
  1. FUROSEMIDE. [Concomitant]
     Active Substance: FUROSEMIDE
  2. ISOSORB MONO [Concomitant]
     Active Substance: ISOSORBIDE MONONITRATE
  3. METOPROL TAR [Concomitant]
  4. LOSARTAN POT [Concomitant]
     Active Substance: LOSARTAN POTASSIUM
  5. PIOGLITAZONE. [Concomitant]
     Active Substance: PIOGLITAZONE
  6. METFORMIN ER [Concomitant]
     Active Substance: METFORMIN HYDROCHLORIDE
  7. WARFARIN [Concomitant]
     Active Substance: WARFARIN
  8. ESBRIET [Suspect]
     Active Substance: PIRFENIDONE
     Indication: IDIOPATHIC PULMONARY FIBROSIS
     Dosage: STARTER    SECTION B5 PO??TAKE 1 TABLET BY MOUTH THREE TIMES DAILY FOR ONE WEEK, THEN TAKE 2 TABLETS BY MOUTH THREE TIMES DAILY FOR ONE WEEK, THEN TAKE 3 TABLETS BY MOUTH 3 TIMES DAILY
     Route: 048
     Dates: start: 20210707
  9. ATORVASTATIN [Concomitant]
     Active Substance: ATORVASTATIN
  10. POTUASSIUM SULFATE [Concomitant]
  11. TRELEGY ELLIPTA [Concomitant]
     Active Substance: FLUTICASONE FUROATE\UMECLIDINIUM BROMIDE\VILANTEROL TRIFENATATE
  12. CLOPIDOGREL [Concomitant]
     Active Substance: CLOPIDOGREL BISULFATE

REACTIONS (1)
  - Respiratory disorder [None]
